FAERS Safety Report 14714912 (Version 1)
Quarter: 2018Q2

REPORT INFORMATION
  Report Type: Spontaneous
  Country: FR (occurrence: FR)
  Receive Date: 20180404
  Receipt Date: 20180404
  Transmission Date: 20180711
  Serious: Yes (Hospitalization)
  Sender: FDA-Public Use
  Company Number: FR-TEVA-2018-FR-875832

PATIENT
  Age: 62 Year
  Sex: Female
  Weight: 88 kg

DRUGS (7)
  1. TEMESTA (LORAZEPAM) [Suspect]
     Active Substance: LORAZEPAM
     Indication: DEPRESSION
     Route: 048
     Dates: start: 20170608, end: 20170608
  2. LOXAPAC 25 MG, COMPRIM? PELLICUL? [Suspect]
     Active Substance: LOXAPINE SUCCINATE
     Indication: MANIA
     Route: 048
     Dates: start: 20170608, end: 20170608
  3. IMOVANE [Suspect]
     Active Substance: ZOPICLONE
     Indication: DEPRESSION
     Route: 048
     Dates: start: 20170607, end: 20170607
  4. DEPAKOTE [Suspect]
     Active Substance: DIVALPROEX SODIUM
     Indication: MANIA
     Route: 048
     Dates: start: 20170608, end: 20170608
  5. TRAMADOL (CHLORHYDRATE DE) [Suspect]
     Active Substance: TRAMADOL HYDROCHLORIDE
     Indication: MUSCULOSKELETAL PAIN
     Route: 048
     Dates: start: 20170607, end: 20170608
  6. KESTIN 10 MG, COMPRIM? PELLICUL? [Concomitant]
     Route: 048
  7. SINGULAIR 5 MG, COMPRIM? ? CROQUER [Concomitant]
     Route: 048

REACTIONS (2)
  - Malaise [Recovered/Resolved]
  - Loss of consciousness [Recovered/Resolved]

NARRATIVE: CASE EVENT DATE: 20170608
